FAERS Safety Report 16228036 (Version 1)
Quarter: 2019Q2

REPORT INFORMATION
  Report Type: Spontaneous
  Country: US (occurrence: US)
  Receive Date: 20190422
  Receipt Date: 20190422
  Transmission Date: 20190711
  Serious: Yes (Hospitalization)
  Sender: FDA-Public Use
  Company Number: None

PATIENT
  Age: 52 Year
  Sex: Female
  Weight: 62 kg

DRUGS (1)
  1. LIDOCAINE 1 % [Suspect]
     Active Substance: LIDOCAINE
     Indication: BIOPSY BREAST
     Dosage: ?          OTHER FREQUENCY:ONCE;?
     Route: 023

REACTIONS (6)
  - Hyperhidrosis [None]
  - Apnoea [None]
  - Syncope [None]
  - Unresponsive to stimuli [None]
  - Tremor [None]
  - Tachycardia [None]

NARRATIVE: CASE EVENT DATE: 20190410
